FAERS Safety Report 8778596 (Version 4)
Quarter: 2013Q1

REPORT INFORMATION
  Report Type: Spontaneous
  Country: DE (occurrence: DE)
  Receive Date: 20120912
  Receipt Date: 20130111
  Transmission Date: 20140127
  Serious: Yes (Life-Threatening, Hospitalization, Other)
  Sender: FDA-Public Use
  Company Number: DE-ALEXION-A201201671

PATIENT
  Age: 6 Year
  Sex: Female

DRUGS (11)
  1. SOLIRIS 300MG [Suspect]
     Indication: HAEMOLYTIC URAEMIC SYNDROME
     Dosage: 600 MG, SINGLE
     Route: 042
     Dates: start: 20120626, end: 20120626
  2. SOLIRIS 300MG [Suspect]
     Dosage: 300 MG, Q2W
     Route: 042
     Dates: start: 20120703
  3. PROGRAF [Concomitant]
     Indication: RENAL TRANSPLANT
     Dosage: 5 MG, UNK
     Dates: start: 20120627
  4. PROGRAF [Concomitant]
     Indication: IMMUNOSUPPRESSION
     Dosage: 3 MG, BID
     Route: 048
  5. DECORTIN [Concomitant]
     Indication: RENAL TRANSPLANT
     Dosage: 4 MG, TID
     Route: 048
     Dates: start: 20120627
  6. DECORTIN [Concomitant]
     Indication: IMMUNOSUPPRESSION
  7. CELLCEPT [Concomitant]
     Indication: RENAL TRANSPLANT
     Dosage: 150 MG, BID
     Route: 048
     Dates: start: 20120627, end: 20120816
  8. CELLCEPT [Concomitant]
     Indication: IMMUNOSUPPRESSION
  9. AMLODIPIN [Concomitant]
     Indication: RENAL ARTERY STENOSIS
     Dosage: 1 MG
  10. VALGANCICLOVIR [Concomitant]
     Indication: ANTIVIRAL PROPHYLAXIS
     Dosage: 160 MG
  11. COTRIMOXAZOLE [Concomitant]

REACTIONS (8)
  - Circulatory collapse [Not Recovered/Not Resolved]
  - Renal failure acute [Not Recovered/Not Resolved]
  - Respiratory distress [Not Recovered/Not Resolved]
  - Sepsis [Not Recovered/Not Resolved]
  - Epstein-Barr virus antigen positive [Not Recovered/Not Resolved]
  - Agranulocytosis [Not Recovered/Not Resolved]
  - Leukopenia [Not Recovered/Not Resolved]
  - Pyrexia [Not Recovered/Not Resolved]
